FAERS Safety Report 16449851 (Version 1)
Quarter: 2019Q2

REPORT INFORMATION
  Report Type: Spontaneous
  Country: US (occurrence: US)
  Receive Date: 20190509
  Receipt Date: 20190509
  Transmission Date: 20190711
  Serious: Yes (Hospitalization)
  Sender: FDA-Public Use
  Company Number: None

PATIENT
  Age: 8 Year
  Sex: Male
  Weight: 18.6 kg

DRUGS (3)
  1. CYCLOPHOSPHAMIDE. [Suspect]
     Active Substance: CYCLOPHOSPHAMIDE
     Dates: end: 20190416
  2. DACTINOMYCIN [Suspect]
     Active Substance: DACTINOMYCIN
     Dates: end: 20190416
  3. VINCRISTINE [Suspect]
     Active Substance: VINCRISTINE
     Dates: end: 20190501

REACTIONS (9)
  - Abdominal pain [None]
  - Urine flow decreased [None]
  - Vomiting [None]
  - Dysuria [None]
  - Ileus [None]
  - Anxiety [None]
  - Complication associated with device [None]
  - Therapeutic product effect decreased [None]
  - Urinary retention [None]

NARRATIVE: CASE EVENT DATE: 20190506
